FAERS Safety Report 24830763 (Version 1)
Quarter: 2025Q1

REPORT INFORMATION
  Report Type: Spontaneous
  Country: ZA (occurrence: ZA)
  Receive Date: 20250110
  Receipt Date: 20250110
  Transmission Date: 20250409
  Serious: Yes (Death, Other)
  Sender: ALEXION PHARMACEUTICALS
  Company Number: ZA-AstraZeneca-CH-00781755A

PATIENT
  Age: 89 Year

DRUGS (12)
  1. DAPAGLIFLOZIN PROPANEDIOL [Suspect]
     Active Substance: DAPAGLIFLOZIN PROPANEDIOL
  2. DAPAGLIFLOZIN PROPANEDIOL [Suspect]
     Active Substance: DAPAGLIFLOZIN PROPANEDIOL
     Route: 048
  3. DAPAGLIFLOZIN PROPANEDIOL [Suspect]
     Active Substance: DAPAGLIFLOZIN PROPANEDIOL
  4. DAPAGLIFLOZIN PROPANEDIOL [Suspect]
     Active Substance: DAPAGLIFLOZIN PROPANEDIOL
     Route: 048
  5. FUROSEMIDE [Concomitant]
     Active Substance: FUROSEMIDE
     Route: 048
  6. FUROSEMIDE [Concomitant]
     Active Substance: FUROSEMIDE
  7. Pharmapress [Concomitant]
     Route: 048
  8. Pharmapress [Concomitant]
  9. LANSOPRAZOLE [Concomitant]
     Active Substance: LANSOPRAZOLE
     Route: 048
  10. LANSOPRAZOLE [Concomitant]
     Active Substance: LANSOPRAZOLE
  11. LEVALBUTEROL HYDROCHLORIDE [Concomitant]
     Active Substance: LEVALBUTEROL HYDROCHLORIDE
     Route: 048
  12. LEVALBUTEROL HYDROCHLORIDE [Concomitant]
     Active Substance: LEVALBUTEROL HYDROCHLORIDE

REACTIONS (3)
  - Death [Fatal]
  - Cardiac failure [Unknown]
  - Lung neoplasm malignant [Unknown]
